FAERS Safety Report 5407149-5 (Version None)
Quarter: 2007Q3

REPORT INFORMATION
  Report Type: 
  Country: None (occurrence: None)
  Receive Date: 20070803
  Receipt Date: 20070803
  Transmission Date: 20080115
  Serious: No
  Sender: FDA-Public Use
  Company Number: None

PATIENT
  Sex: Male
  Weight: 73.4 kg

DRUGS (1)
  1. CISPLATIN [Suspect]
     Dosage: 192 MG
     Dates: end: 20070709

REACTIONS (3)
  - NAUSEA [None]
  - PAIN [None]
  - VOMITING [None]
